FAERS Safety Report 7302002-4 (Version None)
Quarter: 2011Q1

REPORT INFORMATION
  Report Type: 
  Country: None (occurrence: None)
  Receive Date: 20110218
  Receipt Date: 20110209
  Transmission Date: 20110831
  Serious: Yes (Other)
  Sender: FDA-Public Use
  Company Number: JP-AMGEN-JPNCT2011000848

PATIENT
  Age: 67 Year
  Sex: Female
  Weight: 45 kg

DRUGS (9)
  1. ANTIHISTAMINES [Concomitant]
     Indication: PROPHYLAXIS
     Route: 065
  2. CORTICOSTEROIDS [Concomitant]
     Indication: PROPHYLAXIS
     Route: 065
  3. HIRUDOID LOTION [Concomitant]
     Route: 062
  4. NERISONA OINTMENT [Concomitant]
     Route: 062
  5. PANITUMUMAB [Suspect]
     Indication: COLORECTAL CANCER
     Dosage: 6 MG/KG, Q2WK
     Route: 041
     Dates: start: 20100917, end: 20101029
  6. MINOMYCIN [Concomitant]
     Route: 048
  7. SEROTONE [Concomitant]
     Route: 048
  8. PANITUMUMAB [Suspect]
     Dosage: 6 MG/KG, Q2WK
     Dates: start: 20101224
  9. IRINOTECAN HYDROCHLORIDE [Concomitant]
     Indication: COLORECTAL CANCER
     Route: 041
     Dates: start: 20100917, end: 20101015

REACTIONS (3)
  - DYSGEUSIA [None]
  - DRY SKIN [None]
  - DERMATITIS ACNEIFORM [None]
